FAERS Safety Report 14529233 (Version 1)
Quarter: 2018Q1

REPORT INFORMATION
  Report Type: Spontaneous
  Country: FR (occurrence: FR)
  Receive Date: 20180214
  Receipt Date: 20180214
  Transmission Date: 20180509
  Serious: Yes (Hospitalization)
  Sender: FDA-Public Use
  Company Number: FR-BAUSCH-BL-2018-003197

PATIENT
  Age: 83 Year
  Sex: Female
  Weight: 60 kg

DRUGS (6)
  1. CUBICIN [Suspect]
     Active Substance: DAPTOMYCIN
     Indication: SUPERINFECTION BACTERIAL
     Route: 042
     Dates: start: 20180112
  2. CEFEPIME [Suspect]
     Active Substance: CEFEPIME HYDROCHLORIDE
     Dosage: DOSE REDUCED
     Route: 042
     Dates: start: 201801
  3. CEFEPIME [Suspect]
     Active Substance: CEFEPIME HYDROCHLORIDE
     Indication: SUPERINFECTION BACTERIAL
     Route: 042
     Dates: start: 20180112
  4. VANCOMYCINE SANDOZ [Suspect]
     Active Substance: VANCOMYCIN
     Indication: SUPERINFECTION BACTERIAL
     Route: 042
     Dates: start: 20180111, end: 20180112
  5. GENTAMICINE [Suspect]
     Active Substance: GENTAMICIN
     Indication: SUPERINFECTION BACTERIAL
     Route: 042
  6. CUBICIN [Suspect]
     Active Substance: DAPTOMYCIN
     Dosage: DOSE REDUCED
     Route: 042
     Dates: start: 201801

REACTIONS (2)
  - Acute kidney injury [Not Recovered/Not Resolved]
  - Overdose [Unknown]

NARRATIVE: CASE EVENT DATE: 20180114
